FAERS Safety Report 17596665 (Version 1)
Quarter: 2020Q1

REPORT INFORMATION
  Report Type: Report from Study
  Country: CO (occurrence: CO)
  Receive Date: 20200330
  Receipt Date: 20200330
  Transmission Date: 20200409
  Serious: Yes (Hospitalization)
  Sender: FDA-Public Use
  Company Number: CO-ROCHE-2475072

PATIENT
  Sex: Female

DRUGS (1)
  1. AVASTIN [Suspect]
     Active Substance: BEVACIZUMAB
     Indication: PRODUCT USED FOR UNKNOWN INDICATION
     Route: 042

REACTIONS (7)
  - Malaise [Unknown]
  - Discomfort [Unknown]
  - Tachycardia [Unknown]
  - Acne [Recovering/Resolving]
  - Asthenia [Unknown]
  - Arthralgia [Unknown]
  - Anaemia [Unknown]
